FAERS Safety Report 18046020 (Version 1)
Quarter: 2020Q3

REPORT INFORMATION
  Report Type: Spontaneous
  Country: HR (occurrence: HR)
  Receive Date: 20200720
  Receipt Date: 20200720
  Transmission Date: 20201103
  Serious: Yes (Other)
  Sender: FDA-Public Use
  Company Number: HR-PFIZER INC-2020253544

PATIENT
  Age: 29 Year
  Sex: Female
  Weight: 80 kg

DRUGS (6)
  1. OXCARBAZEPINE. [Concomitant]
     Active Substance: OXCARBAZEPINE
     Dosage: UNK
  2. PREGABALIN. [Suspect]
     Active Substance: PREGABALIN
     Indication: EPILEPSY
     Dosage: UNK
     Route: 048
  3. PREGABALIN. [Suspect]
     Active Substance: PREGABALIN
     Indication: MIGRAINE
  4. LACOSAMIDE. [Concomitant]
     Active Substance: LACOSAMIDE
     Dosage: UNK
  5. LEVETIRACETAM. [Concomitant]
     Active Substance: LEVETIRACETAM
     Dosage: UNK
  6. AIMOVIG [Suspect]
     Active Substance: ERENUMAB-AOOE
     Indication: MIGRAINE
     Dosage: UNK
     Route: 058

REACTIONS (3)
  - Somnolence [Recovered/Resolved]
  - Migraine [Unknown]
  - Epilepsy [Unknown]

NARRATIVE: CASE EVENT DATE: 2014
